FAERS Safety Report 8293987-0 (Version None)
Quarter: 2012Q2

REPORT INFORMATION
  Report Type: 
  Country: None (occurrence: None)
  Receive Date: 20120418
  Receipt Date: 20120406
  Transmission Date: 20120825
  Serious: Yes (Hospitalization)
  Sender: FDA-Public Use
  Company Number: NL-JNJFOC-20120111313

PATIENT
  Sex: Female
  Weight: 62 kg

DRUGS (5)
  1. HUMIRA [Concomitant]
     Dates: start: 20110501
  2. BUDESONIDE [Concomitant]
  3. REMICADE [Suspect]
     Indication: CROHN'S DISEASE
     Route: 042
     Dates: start: 20090701
  4. PREDNISONE [Concomitant]
  5. AZATHIOPRINE [Concomitant]

REACTIONS (2)
  - CROHN'S DISEASE [None]
  - ILEAL FISTULA [None]
